FAERS Safety Report 8263347-7 (Version None)
Quarter: 2012Q1

REPORT INFORMATION
  Report Type: 
  Country: None (occurrence: None)
  Receive Date: 20120327
  Receipt Date: 20110421
  Transmission Date: 20120608
  Serious: Yes (Hospitalization, Other)
  Sender: FDA-Public Use
  Company Number: PHHY2011US35151

PATIENT
  Age: 53 Year
  Sex: Male

DRUGS (1)
  1. GLEEVEC [Suspect]
     Indication: CHRONIC MYELOID LEUKAEMIA
     Dosage: , ORAL
     Route: 048
     Dates: start: 20080201, end: 20101201

REACTIONS (3)
  - FATIGUE [None]
  - DYSPHAGIA [None]
  - NAUSEA [None]
